FAERS Safety Report 8594057 (Version 2)
Quarter: 2013Q2

REPORT INFORMATION
  Report Type: Report from Study
  Country: NZ (occurrence: NZ)
  Receive Date: 20120604
  Receipt Date: 20130603
  Transmission Date: 20140414
  Serious: Yes (Hospitalization)
  Sender: FDA-Public Use
  Company Number: PHHY2012NZ046434

PATIENT
  Age: 80 Year
  Sex: Female

DRUGS (1)
  1. ACLASTA [Suspect]
     Dosage: UNK
     Route: 042
     Dates: start: 20120521

REACTIONS (5)
  - Loss of consciousness [Unknown]
  - Fall [Unknown]
  - Syncope [Unknown]
  - Musculoskeletal stiffness [Unknown]
  - Headache [Unknown]
